FAERS Safety Report 7157399-5 (Version None)
Quarter: 2010Q4

REPORT INFORMATION
  Report Type: 
  Country: None (occurrence: None)
  Receive Date: 20101214
  Receipt Date: 20101201
  Transmission Date: 20110411
  Serious: Yes (Hospitalization)
  Sender: FDA-Public Use
  Company Number: A0766665A

PATIENT
  Age: 55 Year
  Sex: Male
  Weight: 103.2 kg

DRUGS (3)
  1. AVANDIA [Suspect]
     Indication: TYPE 2 DIABETES MELLITUS
     Dosage: 4MG PER DAY
     Route: 048
     Dates: start: 20030101, end: 20051201
  2. METFORMIN [Concomitant]
     Dates: start: 20041201, end: 20050101
  3. GLUCOTROL [Concomitant]
     Dosage: 10MG CUMULATIVE DOSE
     Dates: start: 20010201, end: 20060601

REACTIONS (8)
  - ANXIETY [None]
  - CHEST PAIN [None]
  - DIZZINESS [None]
  - FATIGUE [None]
  - HYPERCHOLESTEROLAEMIA [None]
  - HYPERLIPIDAEMIA [None]
  - MYOCARDIAL ISCHAEMIA [None]
  - PAIN [None]
